FAERS Safety Report 16430861 (Version 1)
Quarter: 2019Q2

REPORT INFORMATION
  Report Type: Spontaneous
  Country: US (occurrence: US)
  Receive Date: 20190614
  Receipt Date: 20190614
  Transmission Date: 20190711
  Serious: No
  Sender: FDA-Public Use
  Company Number: US-009507513-1906USA004949

PATIENT
  Age: 65 Year
  Sex: Male

DRUGS (3)
  1. TICE BCG [Suspect]
     Active Substance: BACILLUS CALMETTE-GUERIN SUBSTRAIN TICE LIVE ANTIGEN
     Indication: BLADDER CANCER
     Dosage: EVERY WEEK FOR 6 WEEKS
     Route: 043
     Dates: start: 201805
  2. TICE BCG [Suspect]
     Active Substance: BACILLUS CALMETTE-GUERIN SUBSTRAIN TICE LIVE ANTIGEN
     Dosage: UNK
     Route: 043
     Dates: start: 2018
  3. TICE BCG [Suspect]
     Active Substance: BACILLUS CALMETTE-GUERIN SUBSTRAIN TICE LIVE ANTIGEN
     Dosage: 1 TREATMENT OF TICE BCG WEEKLY FOR 3 WEEKS
     Route: 043
     Dates: start: 201812

REACTIONS (8)
  - Infection [Recovered/Resolved]
  - Influenza like illness [Unknown]
  - Arthritis [Unknown]
  - Burning sensation [Unknown]
  - Bladder disorder [Unknown]
  - Product dose omission [Unknown]
  - Product availability issue [Unknown]
  - Inadequate aseptic technique in use of product [Unknown]

NARRATIVE: CASE EVENT DATE: 2018
